FAERS Safety Report 12402089 (Version 1)
Quarter: 2016Q2

REPORT INFORMATION
  Report Type: Spontaneous
  Country: US (occurrence: US)
  Receive Date: 20160525
  Receipt Date: 20160525
  Transmission Date: 20160815
  Serious: Yes (Hospitalization)
  Sender: FDA-Public Use
  Company Number: US-INSYS THERAPEUTICS, INC-INS201605-000202

PATIENT
  Sex: Female

DRUGS (2)
  1. SUBSYS [Suspect]
     Active Substance: FENTANYL
     Indication: PAIN
     Route: 060
  2. SUBSYS [Suspect]
     Active Substance: FENTANYL
     Indication: MYELOPATHY

REACTIONS (2)
  - Neoplasm progression [Unknown]
  - Traumatic lung injury [Unknown]
